FAERS Safety Report 6108415-0 (Version None)
Quarter: 2009Q1

REPORT INFORMATION
  Report Type: 
  Country: None (occurrence: None)
  Receive Date: 20090309
  Receipt Date: 20090309
  Transmission Date: 20090719
  Serious: Yes (Hospitalization)
  Sender: FDA-Public Use
  Company Number: PHHO2000IT08223

PATIENT
  Sex: Female
  Weight: 64 kg

DRUGS (4)
  1. NEORAL [Suspect]
     Indication: LIVER TRANSPLANT
     Dosage: UNK, UNK
  2. SIMULECT [Suspect]
     Indication: LIVER TRANSPLANT
     Dosage: 20 MG, OT
     Route: 042
     Dates: start: 19990902, end: 19990902
  3. SIMULECT [Suspect]
     Dosage: 20 MG, OT
     Route: 042
     Dates: start: 19990905, end: 19990905
  4. PLACEBO PLACEBO [Suspect]

REACTIONS (2)
  - HEPATITIS C [None]
  - NERVOUS SYSTEM DISORDER [None]
